FAERS Safety Report 17007545 (Version 1)
Quarter: 2019Q4

REPORT INFORMATION
  Report Type: Spontaneous
  Country: US (occurrence: US)
  Receive Date: 20191108
  Receipt Date: 20191108
  Transmission Date: 20200122
  Serious: No
  Sender: FDA-Public Use
  Company Number: US-ASTRAZENECA-2019SF46122

PATIENT
  Sex: Female

DRUGS (1)
  1. BYDUREON BCISE [Suspect]
     Active Substance: EXENATIDE
     Dosage: 2MG,4 COUNT.
     Route: 065

REACTIONS (5)
  - Injection site pruritus [Unknown]
  - Injection site extravasation [Unknown]
  - Device leakage [Unknown]
  - Needle issue [Unknown]
  - Wrong technique in product usage process [Unknown]
